FAERS Safety Report 15019347 (Version 2)
Quarter: 2020Q3

REPORT INFORMATION
  Report Type: Spontaneous
  Country: GB (occurrence: GB)
  Receive Date: 20180617
  Receipt Date: 20200924
  Transmission Date: 20201102
  Serious: Yes (Hospitalization, Other)
  Sender: FDA-Public Use
  Company Number: PHHY2015GB177873

PATIENT
  Sex: Female

DRUGS (21)
  1. DOCETAXEL. [Suspect]
     Active Substance: DOCETAXEL
     Indication: HER2 POSITIVE BREAST CANCER
     Dosage: 160 MG, TIW (ON 04/NOV/2015, SHE COMPLETED PLANNED CYCLES OF DOCETAXEL.)
     Route: 042
     Dates: start: 20150722
  2. DEXAMETHASONE. [Concomitant]
     Active Substance: DEXAMETHASONE
     Indication: PROPHYLAXIS
     Dosage: UNK (3 DAYS STARTING A DAY BEFORE CHEMOTHERAPY)
     Route: 048
  3. DEXAMETHASONE. [Concomitant]
     Active Substance: DEXAMETHASONE
     Dosage: 2 MG, UNK
     Route: 048
  4. LETROZOLE. [Suspect]
     Active Substance: LETROZOLE
     Indication: HER2 POSITIVE BREAST CANCER
     Dosage: 2.5 MG, UNK
     Route: 048
     Dates: start: 20151124
  5. LETROZOLE. [Suspect]
     Active Substance: LETROZOLE
     Indication: BREAST CANCER METASTATIC
  6. PERTUZUMAB. [Suspect]
     Active Substance: PERTUZUMAB
     Indication: BREAST CANCER METASTATIC
     Dosage: 840 MG, TIW (LOADING DOSE)
     Route: 042
     Dates: start: 20150722, end: 20150722
  7. PERTUZUMAB. [Suspect]
     Active Substance: PERTUZUMAB
     Dosage: 840 MG, UNK
     Route: 042
  8. LOPERAMIDE [Concomitant]
     Active Substance: LOPERAMIDE
     Dosage: 2 MG (1 OR 2 CAPSULES, MAXIMUM 8 TIMES A DAY)
     Route: 048
     Dates: start: 20150804, end: 20180323
  9. TRASTUZUMAB. [Suspect]
     Active Substance: TRASTUZUMAB
     Indication: BREAST CANCER METASTATIC
     Dosage: 900 MG, UNK
     Route: 042
  10. TRASTUZUMAB. [Suspect]
     Active Substance: TRASTUZUMAB
     Dosage: 525 MG, TIW (MAINTENANCE DOSE)
     Route: 042
     Dates: start: 20180109, end: 20180220
  11. TRASTUZUMAB. [Suspect]
     Active Substance: TRASTUZUMAB
     Dosage: 900 MG, TIW (LOADING DOSE)
     Route: 042
     Dates: start: 20150722, end: 20150722
  12. LOPERAMIDE [Concomitant]
     Active Substance: LOPERAMIDE
     Indication: PROPHYLAXIS
     Dosage: 2 MG, UNK
     Route: 048
  13. NAPROXEN SODIUM. [Concomitant]
     Active Substance: NAPROXEN SODIUM
     Indication: PRODUCT USED FOR UNKNOWN INDICATION
     Route: 048
  14. TRASTUZUMAB. [Suspect]
     Active Substance: TRASTUZUMAB
     Dosage: 600 MG, TIW (MAINTENANCE DOSE)
     Route: 042
     Dates: start: 20150812, end: 20171219
  15. DEXAMETHASONE. [Concomitant]
     Active Substance: DEXAMETHASONE
     Dosage: 2 MG
     Route: 048
     Dates: start: 20150901, end: 20150903
  16. DOCETAXEL. [Suspect]
     Active Substance: DOCETAXEL
     Indication: BREAST CANCER METASTATIC
  17. PERTUZUMAB. [Suspect]
     Active Substance: PERTUZUMAB
     Indication: HER2 POSITIVE BREAST CANCER
     Dosage: 420 MG, TIW (MAINTENANCE DOSE)
     Route: 042
     Dates: start: 20150812, end: 20180220
  18. DEXAMETHASONE. [Concomitant]
     Active Substance: DEXAMETHASONE
     Dosage: 2 MG (3 DAYS STARTING A DAY BEFORE CHEMOTHERAPY)
     Route: 048
     Dates: start: 20150806
  19. BENDROFLUMETHIAZIDE [Concomitant]
     Active Substance: BENDROFLUMETHIAZIDE
     Dosage: 2.5 UNK
     Route: 048
  20. TRASTUZUMAB. [Suspect]
     Active Substance: TRASTUZUMAB
     Indication: HER2 POSITIVE BREAST CANCER
     Dosage: 675 MG, UNK
     Route: 042
     Dates: start: 20150812
  21. BENDROFLUMETHIAZIDE [Concomitant]
     Active Substance: BENDROFLUMETHIAZIDE
     Indication: PRODUCT USED FOR UNKNOWN INDICATION
     Dosage: UNK
     Route: 048

REACTIONS (22)
  - Neutropenic sepsis [Recovered/Resolved]
  - Myelosuppression [Recovered/Resolved]
  - Ejection fraction decreased [Recovered/Resolved]
  - Hypokalaemia [Recovered/Resolved]
  - Skin exfoliation [Not Recovered/Not Resolved]
  - Oedema peripheral [Recovered/Resolved]
  - Dysgeusia [Recovered/Resolved]
  - Laryngitis [Unknown]
  - Bronchitis [Recovered/Resolved]
  - Decreased appetite [Recovered/Resolved]
  - Neuropathy peripheral [Not Recovered/Not Resolved]
  - Fatigue [Recovered/Resolved]
  - Erythema [Recovered/Resolved]
  - Myalgia [Recovered/Resolved]
  - Onychomadesis [Recovered/Resolved]
  - Dysphagia [Not Recovered/Not Resolved]
  - Dyspepsia [Recovered/Resolved]
  - Urinary tract infection [Recovered/Resolved]
  - Cellulitis [Recovered/Resolved]
  - Ejection fraction decreased [Not Recovered/Not Resolved]
  - Nail dystrophy [Recovered/Resolved]
  - Chest discomfort [Not Recovered/Not Resolved]

NARRATIVE: CASE EVENT DATE: 20150813
